FAERS Safety Report 5637762-1 (Version None)
Quarter: 2008Q1

REPORT INFORMATION
  Report Type: 
  Country: None (occurrence: None)
  Receive Date: 20080219
  Receipt Date: 20080211
  Transmission Date: 20080703
  Serious: Yes (Death)
  Sender: FDA-Public Use
  Company Number: 163-21880-08011564

PATIENT
  Age: 80 Year
  Sex: Female

DRUGS (2)
  1. REVLIMID [Suspect]
     Indication: MULTIPLE MYELOMA
     Dosage: 15 MG, 1 IN 1 D, ORAL; X21 DAYS /28, ORAL
     Route: 046
     Dates: start: 20071001, end: 20071101
  2. REVLIMID [Suspect]
     Indication: MULTIPLE MYELOMA
     Dosage: 15 MG, 1 IN 1 D, ORAL; X21 DAYS /28, ORAL
     Route: 046
     Dates: start: 20071101, end: 20071201

REACTIONS (4)
  - DISEASE PROGRESSION [None]
  - MULTIPLE MYELOMA [None]
  - MUSCULOSKELETAL PAIN [None]
  - SEPSIS [None]
